FAERS Safety Report 9331439 (Version 2)
Quarter: 2013Q2

REPORT INFORMATION
  Report Type: Report from Study
  Country: BR (occurrence: BR)
  Receive Date: 20130605
  Receipt Date: 20130624
  Transmission Date: 20140414
  Serious: Yes (Death, Other)
  Sender: FDA-Public Use
  Company Number: BR-ELI_LILLY_AND_COMPANY-BR201303000345

PATIENT
  Sex: Female
  Weight: 48 kg

DRUGS (11)
  1. TERIPARATIDE [Suspect]
     Dosage: UNK, QD
     Route: 065
     Dates: start: 20120913
  2. DIPIRONA [Concomitant]
     Dosage: UNK, UNKNOWN
     Route: 065
  3. IMMUNOGLOBULIN [Concomitant]
     Dosage: UNK, UNKNOWN
     Route: 065
  4. SALBUTAMOL [Concomitant]
     Dosage: UNK, UNKNOWN
     Route: 065
  5. FLUTICASONE PROPIONATE [Concomitant]
     Dosage: UNK, UNKNOWN
     Route: 065
  6. BAMIFYLLINE HYDROCHLORIDE [Concomitant]
     Dosage: UNK, UNKNOWN
     Route: 065
  7. SALMETEROL XINAFOATE [Concomitant]
     Dosage: UNK, UNKNOWN
     Route: 065
  8. DEXAMETHASONE [Concomitant]
     Dosage: UNK, UNKNOWN
     Route: 005
  9. COLECALCIFEROL [Concomitant]
     Dosage: UNK, UNKNOWN
     Route: 065
  10. CALCIUM CARBONATE [Concomitant]
     Dosage: UNK, UNKNOWN
     Route: 065
  11. FOLIC ACID [Concomitant]
     Dosage: UNK, UNKNOWN
     Route: 065

REACTIONS (14)
  - Death [Fatal]
  - Arrhythmia [Unknown]
  - Headache [Not Recovered/Not Resolved]
  - Cardiac disorder [Not Recovered/Not Resolved]
  - Headache [Not Recovered/Not Resolved]
  - Pain in extremity [Unknown]
  - Skin disorder [Unknown]
  - Drug dose omission [Unknown]
  - Incorrect storage of drug [Unknown]
  - Depression [Unknown]
  - Erythema [Unknown]
  - Fatigue [Unknown]
  - Muscular weakness [Unknown]
  - Muscle spasms [Unknown]
